FAERS Safety Report 14039041 (Version 2)
Quarter: 2017Q4

REPORT INFORMATION
  Report Type: Spontaneous
  Country: RU (occurrence: RU)
  Receive Date: 20171004
  Receipt Date: 20171103
  Transmission Date: 20180321
  Serious: Yes (Hospitalization, Other)
  Sender: FDA-Public Use
  Company Number: RU-SHIRE-RU201723616

PATIENT

DRUGS (4)
  1. MEZAVANT [Suspect]
     Active Substance: MESALAMINE
     Indication: COLITIS ULCERATIVE
     Dosage: 2 G, UNK
     Route: 048
  2. MEZAVANT [Suspect]
     Active Substance: MESALAMINE
     Dosage: 3 DF, UNK
     Route: 065
  3. MEZAVANT [Suspect]
     Active Substance: MESALAMINE
     Dosage: 2.4 G, UNK
     Route: 065
     Dates: start: 20170905
  4. MEZAVANT [Suspect]
     Active Substance: MESALAMINE
     Dosage: 4 DF, UNK
     Route: 065

REACTIONS (3)
  - Haematochezia [Recovering/Resolving]
  - Drug ineffective [Not Recovered/Not Resolved]
  - Medication residue present [Recovered/Resolved]

NARRATIVE: CASE EVENT DATE: 20170905
